FAERS Safety Report 9854131 (Version 36)
Quarter: 2019Q3

REPORT INFORMATION
  Report Type: Report from Study
  Country: CA (occurrence: CA)
  Receive Date: 20140129
  Receipt Date: 20190723
  Transmission Date: 20191005
  Serious: Yes (Other)
  Sender: FDA-Public Use
  Company Number: CA-ROCHE-1161332

PATIENT
  Age: 72 Year
  Sex: Female
  Weight: 97 kg

DRUGS (17)
  1. ALENDRONATE [Suspect]
     Active Substance: ALENDRONATE SODIUM
     Indication: PRODUCT USED FOR UNKNOWN INDICATION
     Route: 065
     Dates: start: 2015
  2. TYLENOL ARTHRITIS PAIN [Concomitant]
     Active Substance: ACETAMINOPHEN
     Indication: ARTHRITIS
  3. ALPRAZOLAM. [Concomitant]
     Active Substance: ALPRAZOLAM
     Indication: OFF LABEL USE
  4. ACTEMRA [Suspect]
     Active Substance: TOCILIZUMAB
     Route: 042
     Dates: start: 20131022
  5. TYLENOL ARTHRITIS PAIN [Concomitant]
     Active Substance: ACETAMINOPHEN
     Indication: OFF LABEL USE
  6. ACTEMRA [Suspect]
     Active Substance: TOCILIZUMAB
     Indication: OFF LABEL USE
     Route: 042
     Dates: start: 20130214
  7. LIPITOR [Suspect]
     Active Substance: ATORVASTATIN CALCIUM
     Indication: OFF LABEL USE
  8. IBUPROFENE [Concomitant]
     Active Substance: IBUPROFEN
     Indication: OFF LABEL USE
  9. GLYBURIDE. [Concomitant]
     Active Substance: GLYBURIDE
     Indication: OFF LABEL USE
  10. XANAX [Concomitant]
     Active Substance: ALPRAZOLAM
     Indication: OFF LABEL USE
  11. SULFASALAZINE. [Concomitant]
     Active Substance: SULFASALAZINE
     Indication: OFF LABEL USE
  12. PRAVASTATIN. [Concomitant]
     Active Substance: PRAVASTATIN
     Indication: OFF LABEL USE
     Route: 048
     Dates: start: 2013
  13. LIPITOR [Suspect]
     Active Substance: ATORVASTATIN CALCIUM
     Indication: BLOOD CHOLESTEROL INCREASED
     Route: 065
  14. ALENDRONATE [Suspect]
     Active Substance: ALENDRONATE SODIUM
     Indication: OFF LABEL USE
  15. ACTEMRA [Suspect]
     Active Substance: TOCILIZUMAB
     Indication: RHEUMATOID ARTHRITIS
     Route: 042
     Dates: start: 20121025
  16. PRO-HYDROXYQUINE [Concomitant]
     Active Substance: HYDROXYCHLOROQUINE SULFATE
     Indication: OFF LABEL USE
  17. PAROXETINE. [Concomitant]
     Active Substance: PAROXETINE
     Indication: OFF LABEL USE

REACTIONS (54)
  - Peripheral swelling [Not Recovered/Not Resolved]
  - Weight decreased [Not Recovered/Not Resolved]
  - Infusion related reaction [Unknown]
  - Blood pressure systolic increased [Unknown]
  - Therapeutic product effect decreased [Unknown]
  - Weight increased [Unknown]
  - Arthralgia [Not Recovered/Not Resolved]
  - Pain [Unknown]
  - Off label use [Unknown]
  - Blood cholesterol increased [Unknown]
  - Blood pressure increased [Not Recovered/Not Resolved]
  - Arthralgia [Unknown]
  - Hepatic steatosis [Unknown]
  - Malaise [Unknown]
  - Hyperhidrosis [Not Recovered/Not Resolved]
  - Fall [Unknown]
  - Heart rate increased [Unknown]
  - Fungal infection [Recovered/Resolved]
  - Influenza [Not Recovered/Not Resolved]
  - Oxygen saturation decreased [Unknown]
  - Heart rate increased [Unknown]
  - Electrocardiogram abnormal [Unknown]
  - Cholelithiasis [Not Recovered/Not Resolved]
  - Vessel puncture site bruise [Not Recovered/Not Resolved]
  - Rash [Not Recovered/Not Resolved]
  - Haemorrhoids [Recovering/Resolving]
  - Chromaturia [Not Recovered/Not Resolved]
  - Pruritus generalised [Recovered/Resolved]
  - Oxygen saturation decreased [Unknown]
  - Pain [Not Recovered/Not Resolved]
  - Diarrhoea [Unknown]
  - Intentional product use issue [Unknown]
  - Gastric disorder [Recovered/Resolved]
  - Pain in extremity [Not Recovered/Not Resolved]
  - Arthralgia [Not Recovered/Not Resolved]
  - Poor dental condition [Unknown]
  - Muscular weakness [Not Recovered/Not Resolved]
  - Joint swelling [Not Recovered/Not Resolved]
  - Pain [Not Recovered/Not Resolved]
  - Rheumatoid arthritis [Recovering/Resolving]
  - Nasopharyngitis [Recovered/Resolved]
  - Blood pressure increased [Unknown]
  - Heart rate decreased [Unknown]
  - Headache [Unknown]
  - Hypotension [Unknown]
  - Heart rate decreased [Unknown]
  - Osteoporosis [Unknown]
  - Musculoskeletal pain [Unknown]
  - Agitation [Unknown]
  - Back pain [Recovering/Resolving]
  - Ligament sprain [Unknown]
  - Pruritus [Recovered/Resolved]
  - Rash generalised [Unknown]
  - Pruritus [Not Recovered/Not Resolved]

NARRATIVE: CASE EVENT DATE: 20121126
